FAERS Safety Report 12930193 (Version 1)
Quarter: 2016Q4

REPORT INFORMATION
  Report Type: Spontaneous
  Country: US (occurrence: US)
  Receive Date: 20161111
  Receipt Date: 20161111
  Transmission Date: 20170207
  Serious: Yes (Life-Threatening, Other)
  Sender: FDA-Public Use
  Company Number: None

PATIENT
  Age: 3 Month
  Sex: Female
  Weight: 17.55 kg

DRUGS (4)
  1. XOPENEX HFA [Concomitant]
     Active Substance: LEVALBUTEROL TARTRATE
  2. CLONEDINE [Concomitant]
  3. BABY TEETHING (HYLAND HOMEOPATHIC) [Suspect]
     Active Substance: HOMEOPATHICS
     Indication: TEETHING
     Dosage: RUBBED INTO GUMS PRN?
     Route: 061
     Dates: start: 20081001, end: 20161110
  4. ATEOVENT HFA [Concomitant]

REACTIONS (7)
  - Agitation [None]
  - Lethargy [None]
  - Crying [None]
  - Intentional self-injury [None]
  - Seizure [None]
  - Product use issue [None]
  - Frustration tolerance decreased [None]

NARRATIVE: CASE EVENT DATE: 20160601
